FAERS Safety Report 4625477-8 (Version None)
Quarter: 2005Q2

REPORT INFORMATION
  Report Type: 
  Country: None (occurrence: None)
  Receive Date: 20050401
  Receipt Date: 20050323
  Transmission Date: 20051028
  Serious: Yes (Other)
  Sender: FDA-Public Use
  Company Number: PHBS2005JP04285

PATIENT
  Age: 76 Year
  Sex: Female

DRUGS (2)
  1. CLOTIAZEPAM [Concomitant]
     Dosage: 5 MG, UNK
     Route: 048
     Dates: start: 20050128
  2. DIOVAN [Suspect]
     Dosage: 80 MG, QD
     Route: 048
     Dates: start: 20040824

REACTIONS (4)
  - BLOOD PRESSURE SYSTOLIC DECREASED [None]
  - FALL [None]
  - LOSS OF CONSCIOUSNESS [None]
  - TRANSIENT ISCHAEMIC ATTACK [None]
